FAERS Safety Report 18908636 (Version 1)
Quarter: 2021Q1

REPORT INFORMATION
  Report Type: Report from Study
  Country: None (occurrence: US)
  Receive Date: 20210218
  Receipt Date: 20210218
  Transmission Date: 20210420
  Serious: Yes (Other)
  Sender: FDA-Public Use
  Company Number: US-ABBVIE-20K-163-3660356-00

PATIENT
  Age: 63 Year
  Sex: Female
  Weight: 77.18 kg

DRUGS (2)
  1. HUMIRA [Suspect]
     Active Substance: ADALIMUMAB
     Indication: PSORIATIC ARTHROPATHY
  2. HUMIRA [Suspect]
     Active Substance: ADALIMUMAB
     Indication: RHEUMATOID ARTHRITIS
     Dosage: CITRATE FREE
     Route: 058

REACTIONS (8)
  - Gastric polyps [Recovered/Resolved]
  - Procedural dizziness [Recovered/Resolved]
  - Arthralgia [Not Recovered/Not Resolved]
  - Gastric disorder [Unknown]
  - Tendon pain [Not Recovered/Not Resolved]
  - Malignant polyp [Recovered/Resolved]
  - Poor quality sleep [Not Recovered/Not Resolved]
  - Rectal polyp [Recovered/Resolved]

NARRATIVE: CASE EVENT DATE: 2019
